FAERS Safety Report 7590624-5 (Version None)
Quarter: 2011Q3

REPORT INFORMATION
  Report Type: 
  Country: None (occurrence: None)
  Receive Date: 20110705
  Receipt Date: 20110627
  Transmission Date: 20111222
  Serious: Yes (Other)
  Sender: FDA-Public Use
  Company Number: DE-B.I. PHARMACEUTICALS,INC./RIDGEFIELD-2011-DE-03765DE

PATIENT
  Age: 2 Year
  Sex: Male

DRUGS (1)
  1. SIFROL [Suspect]
     Dosage: ONCE AN UNKNOWN AMOUNT
     Route: 048

REACTIONS (3)
  - FATIGUE [None]
  - ACCIDENTAL DRUG INTAKE BY CHILD [None]
  - VOMITING [None]
